FAERS Safety Report 15427887 (Version 4)
Quarter: 2022Q1

REPORT INFORMATION
  Report Type: Other
  Country: US (occurrence: None)
  Receive Date: 20180926
  Receipt Date: 20220118
  Transmission Date: 20220423
  Serious: Yes (Other)
  Sender: FDA-Public Use
  Company Number: US-ROCHE-2022900

PATIENT
  Age: 69 Year
  Sex: Male
  Weight: 77.180 kg

DRUGS (2)
  1. NUTROPIN AQ [Suspect]
     Active Substance: SOMATROPIN
     Indication: Hypopituitarism
     Route: 058
  2. NUTROPIN AQ [Suspect]
     Active Substance: SOMATROPIN
     Indication: Growth hormone deficiency
     Dosage: APPEARS TO BE ABOVE DOSE
     Route: 058

REACTIONS (15)
  - Atrial fibrillation [Unknown]
  - Apnoea [Unknown]
  - Atrial fibrillation [Unknown]
  - Alkalosis [Unknown]
  - Blood glucose increased [Unknown]
  - Blood creatinine decreased [Unknown]
  - High density lipoprotein decreased [Unknown]
  - Glycosylated haemoglobin increased [Unknown]
  - Monocyte count increased [Unknown]
  - Red cell distribution width increased [Unknown]
  - Somnolence [Unknown]
  - Empty sella syndrome [Unknown]
  - Hyperaldosteronism [Unknown]
  - Hyponatraemia [Unknown]
  - Temperature intolerance [Unknown]

NARRATIVE: CASE EVENT DATE: 20170527
